FAERS Safety Report 9753294 (Version 1)
Quarter: 2013Q4

REPORT INFORMATION
  Report Type: Spontaneous
  Country: US (occurrence: US)
  Receive Date: 20131213
  Receipt Date: 20131213
  Transmission Date: 20140711
  Serious: No
  Sender: FDA-Public Use
  Company Number: US-TEVA-402629USA

PATIENT
  Age: 50 Year
  Sex: Female
  Weight: 62.65 kg

DRUGS (2)
  1. PARAGARD 380A [Suspect]
     Indication: CONTRACEPTION
     Route: 015
     Dates: start: 2003
  2. VITAMINS [Concomitant]
     Indication: NUTRITIONAL SUPPLEMENTATION
     Dosage: INTERMITTANT

REACTIONS (1)
  - Back pain [Not Recovered/Not Resolved]
